FAERS Safety Report 8990017 (Version 2)
Quarter: 2013Q2

REPORT INFORMATION
  Report Type: Spontaneous
  Country: DE (occurrence: DE)
  Receive Date: 20121228
  Receipt Date: 20130501
  Transmission Date: 20140414
  Serious: Yes (Other)
  Sender: FDA-Public Use
  Company Number: PHHY2012DE119978

PATIENT
  Age: 85 Year
  Sex: Female

DRUGS (1)
  1. PREDNISONE [Suspect]
     Indication: TEMPORAL ARTERITIS
     Dosage: 10 MG, PER DAY
     Dates: start: 1998, end: 2006

REACTIONS (21)
  - Depressed mood [Unknown]
  - Headache [Unknown]
  - Fear [Unknown]
  - Confusional state [Unknown]
  - Nausea [Unknown]
  - Emotional distress [Recovering/Resolving]
  - Insomnia [Unknown]
  - Hypoaesthesia [Unknown]
  - Tachycardia [Unknown]
  - Paraesthesia [Unknown]
  - Speech disorder [Unknown]
  - Withdrawal syndrome [Recovering/Resolving]
  - Ross syndrome [Not Recovered/Not Resolved]
  - Hyperhidrosis [Unknown]
  - Pupillary reflex impaired [Unknown]
  - Anhedonia [Unknown]
  - Areflexia [Unknown]
  - Osteoporosis [Unknown]
  - Arthralgia [Unknown]
  - Myalgia [Unknown]
  - Panic disorder without agoraphobia [Recovering/Resolving]
